FAERS Safety Report 16208764 (Version 2)
Quarter: 2019Q2

REPORT INFORMATION
  Report Type: Spontaneous
  Country: CA (occurrence: CA)
  Receive Date: 20190417
  Receipt Date: 20190502
  Transmission Date: 20190711
  Serious: Yes (Hospitalization)
  Sender: FDA-Public Use
  Company Number: CA-BAYER-2019-072216

PATIENT
  Age: 46 Year
  Sex: Female

DRUGS (2)
  1. MIRENA [Suspect]
     Active Substance: LEVONORGESTREL
     Indication: MENOMETRORRHAGIA
     Dosage: 20 MCG/24HR, CONT
     Route: 015
     Dates: start: 20180615, end: 20190409
  2. MIRENA [Suspect]
     Active Substance: LEVONORGESTREL
     Indication: UTERINE HAEMORRHAGE

REACTIONS (11)
  - Pain in extremity [None]
  - Chest discomfort [Not Recovered/Not Resolved]
  - Muscle strain [None]
  - Peripheral artery dissection [Recovered/Resolved with Sequelae]
  - Vertebral artery dissection [Recovered/Resolved with Sequelae]
  - Hypoaesthesia [None]
  - Feeling hot [None]
  - Headache [None]
  - Visual impairment [None]
  - Sinus tachycardia [None]
  - Cerebrovascular accident [None]

NARRATIVE: CASE EVENT DATE: 201811
